FAERS Safety Report 9095279 (Version 1)
Quarter: 2013Q1

REPORT INFORMATION
  Report Type: Spontaneous
  Country: GB (occurrence: None)
  Receive Date: 20130122
  Receipt Date: 20130122
  Transmission Date: 20140127
  Serious: Yes (Hospitalization)
  Sender: FDA-Public Use
  Company Number: FK201300129

PATIENT
  Age: 53 Year
  Sex: Male

DRUGS (4)
  1. IRINOTECAN [Suspect]
     Indication: COLORECTAL CANCER METASTATIC
  2. FLUOROURACIL [Suspect]
     Indication: COLORECTAL CANCER METASTATIC
  3. FOLINIC ACID [Suspect]
     Indication: COLORECTAL CANCER METASTATIC
  4. ELOXATIN [Suspect]
     Indication: COLORECTAL CANCER METASTATIC

REACTIONS (4)
  - Scrotal swelling [None]
  - Pyrexia [None]
  - Pain [None]
  - Hydrocele [None]
